FAERS Safety Report 4544465-3 (Version None)
Quarter: 2005Q1

REPORT INFORMATION
  Report Type: 
  Country: None (occurrence: None)
  Receive Date: 20050103
  Receipt Date: 20050103
  Transmission Date: 20050727
  Serious: Yes (Disabling)
  Sender: FDA-Public Use
  Company Number: None

PATIENT
  Age: 52 Year
  Sex: Female
  Weight: 48.5349 kg

DRUGS (3)
  1. PROMETHAZINE [Suspect]
     Indication: HEADACHE
     Dosage: 25MG  PRN   INTRAVENOU
     Route: 042
     Dates: start: 20041102, end: 20041102
  2. PROMETHAZINE [Suspect]
     Indication: NAUSEA
     Dosage: 25MG  PRN   INTRAVENOU
     Route: 042
     Dates: start: 20041102, end: 20041102
  3. IV DYE [Concomitant]

REACTIONS (8)
  - ARM AMPUTATION [None]
  - CONFUSIONAL STATE [None]
  - CONTRAST MEDIA REACTION [None]
  - HEADACHE [None]
  - NAUSEA [None]
  - PAIN [None]
  - PAIN IN EXTREMITY [None]
  - VASCULAR OCCLUSION [None]
